FAERS Safety Report 7510515-5 (Version None)
Quarter: 2011Q2

REPORT INFORMATION
  Report Type: 
  Country: None (occurrence: None)
  Receive Date: 20110529
  Receipt Date: 20110523
  Transmission Date: 20111010
  Serious: Yes (Hospitalization)
  Sender: FDA-Public Use
  Company Number: JP-BRISTOL-MYERS SQUIBB COMPANY-15776628

PATIENT
  Age: 61 Year
  Sex: Male
  Weight: 69 kg

DRUGS (10)
  1. ERBITUX [Suspect]
     Indication: COLON CANCER
     Dosage: REDUCED TO:440MG ON 15MAR11 08MAR11-08MAR11
     Route: 041
     Dates: start: 20110308
  2. FLUOROURACIL [Suspect]
     Indication: COLON CANCER
     Dosage: DOSAGE:4280MG 1 IN 2 WK STARTED:08MAR11
     Route: 042
     Dates: start: 20110308
  3. SHAKUYAKU-KANZO-TO [Concomitant]
     Indication: PAIN
     Route: 048
     Dates: start: 20110506
  4. OPSO [Concomitant]
     Indication: PAIN
     Dosage: SPOT ON SOLN
     Route: 048
     Dates: start: 20110425
  5. OXYCONTIN [Concomitant]
     Indication: PAIN
     Route: 048
     Dates: start: 20110506
  6. EURODIN [Concomitant]
     Indication: INSOMNIA
     Route: 048
     Dates: start: 20110506
  7. OXALIPLATIN [Suspect]
     Indication: COLON CANCER
     Route: 041
     Dates: start: 20110308
  8. LOPERAMIDE HCL [Concomitant]
     Route: 048
     Dates: start: 20110506
  9. LENDORMIN [Concomitant]
     Indication: INSOMNIA
     Route: 048
     Dates: start: 20110506
  10. LEUCOVORIN CALCIUM [Suspect]
     Indication: COLON CANCER
     Route: 041
     Dates: start: 20110308

REACTIONS (1)
  - VENOUS THROMBOSIS [None]
